FAERS Safety Report 10048950 (Version 1)
Quarter: 2014Q1

REPORT INFORMATION
  Report Type: Spontaneous
  Country: US (occurrence: US)
  Receive Date: 20140331
  Receipt Date: 20140331
  Transmission Date: 20141002
  Serious: Yes (Hospitalization)
  Sender: FDA-Public Use
  Company Number: US-US-EMD SERONO, INC.-7278886

PATIENT
  Sex: Male

DRUGS (1)
  1. REBIF [Suspect]
     Indication: MULTIPLE SCLEROSIS
     Dates: start: 201311, end: 201312

REACTIONS (4)
  - Anger [Recovered/Resolved]
  - Mood swings [Recovered/Resolved]
  - Suicidal behaviour [Recovered/Resolved]
  - Depression [Recovered/Resolved]
